FAERS Safety Report 24323252 (Version 4)
Quarter: 2024Q4

REPORT INFORMATION
  Report Type: Spontaneous
  Country: US (occurrence: US)
  Receive Date: 20240916
  Receipt Date: 20241204
  Transmission Date: 20250114
  Serious: No
  Sender: PFIZER
  Company Number: US-PFIZER INC-202400253956

PATIENT
  Age: 14 Year
  Sex: Male

DRUGS (1)
  1. GENOTROPIN [Suspect]
     Active Substance: SOMATROPIN
     Dosage: 2.4 MG, DAILY
     Dates: start: 20240907

REACTIONS (4)
  - Wrong technique in device usage process [Unknown]
  - Product knowledge deficit [Unknown]
  - Device leakage [Unknown]
  - Injection site pain [Unknown]

NARRATIVE: CASE EVENT DATE: 20240901
